FAERS Safety Report 21221328 (Version 2)
Quarter: 2022Q3

REPORT INFORMATION
  Report Type: Report from Study
  Country: US (occurrence: None)
  Receive Date: 20220817
  Receipt Date: 20220823
  Transmission Date: 20221026
  Serious: Yes (Death)
  Sender: FDA-Public Use
  Company Number: US-ROCHE-3159088

PATIENT

DRUGS (1)
  1. VEMURAFENIB [Suspect]
     Active Substance: VEMURAFENIB
     Indication: Neuroblastoma
     Dosage: WITH A MAXIMUM DOSE OF 960 MG
     Route: 048
     Dates: start: 20220225

REACTIONS (1)
  - Disease progression [Fatal]
